FAERS Safety Report 8924433 (Version 2)
Quarter: 2012Q4

REPORT INFORMATION
  Report Type: 
  Country: US (occurrence: US)
  Receive Date: 20121126
  Receipt Date: 20121228
  Transmission Date: 20130627
  Serious: Yes (Disabling)
  Sender: FDA-Public Use
  Company Number: US-BAYER-2012-121779

PATIENT
  Age: 67 Year
  Sex: Male

DRUGS (2)
  1. STIVARGA [Suspect]
     Indication: COLORECTAL CANCER
     Dosage: 40 mg, QID
     Route: 048
     Dates: start: 20121029, end: 20121111
  2. STIVARGA [Suspect]
     Indication: COLORECTAL CANCER
     Dosage: 40 mg, BID
     Route: 048
     Dates: start: 201211

REACTIONS (6)
  - Fatigue [Recovering/Resolving]
  - Pain in extremity [None]
  - Diarrhoea [None]
  - Nausea [None]
  - Drug dose omission [None]
  - Incorrect dose administered [None]
